FAERS Safety Report 24953514 (Version 1)
Quarter: 2025Q1

REPORT INFORMATION
  Report Type: Spontaneous
  Country: US (occurrence: US)
  Receive Date: 20250211
  Receipt Date: 20250211
  Transmission Date: 20250408
  Serious: No
  Sender: STRIDES
  Company Number: US-STRIDES ARCOLAB LIMITED-2024SP000596

PATIENT
  Age: 10 Year
  Sex: Male

DRUGS (2)
  1. GLYBURIDE [Suspect]
     Active Substance: GLYBURIDE
     Indication: Type 1 diabetes mellitus
     Route: 065
  2. INSULIN NOS [Concomitant]
     Active Substance: INSULIN NOS
     Indication: Type 1 diabetes mellitus
     Route: 065

REACTIONS (2)
  - Intentional product misuse [Unknown]
  - Treatment noncompliance [Unknown]
